FAERS Safety Report 7131154-4 (Version None)
Quarter: 2010Q4

REPORT INFORMATION
  Report Type: 
  Country: None (occurrence: None)
  Receive Date: 20101201
  Receipt Date: 20101119
  Transmission Date: 20110411
  Serious: Yes (Other)
  Sender: FDA-Public Use
  Company Number: NO-PFIZER INC-2010152912

PATIENT
  Age: 74 Year
  Sex: Female

DRUGS (3)
  1. XALATAN [Suspect]
     Indication: GLAUCOMA
     Dosage: UNK
     Dates: end: 20101119
  2. ALBYL-E [Concomitant]
     Dosage: 75 MG, 1X/DAY
  3. THYROXIN [Concomitant]
     Indication: GOITRE
     Dosage: EVERY OTHER DAY

REACTIONS (3)
  - INSOMNIA [None]
  - PRURITUS GENERALISED [None]
  - RASH GENERALISED [None]
